FAERS Safety Report 17120104 (Version 1)
Quarter: 2019Q4

REPORT INFORMATION
  Report Type: Spontaneous
  Country: IT (occurrence: IT)
  Receive Date: 20191206
  Receipt Date: 20191206
  Transmission Date: 20200122
  Serious: Yes (Death)
  Sender: FDA-Public Use
  Company Number: IT-B.I. PHARMACEUTICALS,INC./RIDGEFIELD-2019-12-117302

PATIENT
  Age: 74 Year
  Sex: Male

DRUGS (6)
  1. PRADAXA [Suspect]
     Active Substance: DABIGATRAN ETEXILATE MESYLATE
     Indication: ATRIAL FIBRILLATION
     Route: 048
  2. ESOMEPRAZOLE SODIUM. [Concomitant]
     Active Substance: ESOMEPRAZOLE SODIUM
     Indication: PRODUCT USED FOR UNKNOWN INDICATION
     Route: 065
  3. SOLDESAM [Concomitant]
     Active Substance: DEXAMETHASONE
     Indication: PRODUCT USED FOR UNKNOWN INDICATION
     Route: 065
  4. TALOFEN [Concomitant]
     Active Substance: PROMAZINE HYDROCHLORIDE
     Indication: PRODUCT USED FOR UNKNOWN INDICATION
     Dosage: 4 G/100 ML GOCCE ORALI, SOLUZIONE
     Route: 065
  5. DOBETIN [CYANOCOBALAMIN] [Concomitant]
     Indication: PRODUCT USED FOR UNKNOWN INDICATION
     Route: 065
  6. RAXAR [DOMPERIDONE] [Concomitant]
     Indication: PRODUCT USED FOR UNKNOWN INDICATION
     Route: 065

REACTIONS (2)
  - Haematemesis [Fatal]
  - Gastrointestinal haemorrhage [Fatal]

NARRATIVE: CASE EVENT DATE: 20191122
